FAERS Safety Report 9092092 (Version 1)
Quarter: 2013Q1

REPORT INFORMATION
  Report Type: Spontaneous
  Country: US (occurrence: US)
  Receive Date: 20130131
  Receipt Date: 20130131
  Transmission Date: 20140127
  Serious: Yes (Other)
  Sender: FDA-Public Use
  Company Number: PHEH2013US002402

PATIENT
  Age: 60 Year
  Sex: Male

DRUGS (20)
  1. AFINITOR [Suspect]
     Indication: TUBEROUS SCLEROSIS
     Dosage: 5 MG, DAILY
     Route: 048
     Dates: start: 20121228
  2. ANTACIDS [Concomitant]
  3. ANALGESICS [Concomitant]
  4. LAXATIVES [Concomitant]
  5. TEGRETOL [Concomitant]
  6. DOXYCYCLINE [Concomitant]
  7. ALBUTEROL [Concomitant]
  8. DIAZEPAM [Concomitant]
  9. ZONEGRAN [Concomitant]
  10. PHENOBARBITAL [Concomitant]
  11. FOSAMAX [Concomitant]
  12. REMERON [Concomitant]
  13. FLUNISOLIDE [Concomitant]
  14. CALTRATE [Concomitant]
  15. VITAMIN D [Concomitant]
  16. ROBITUSSIN [Concomitant]
  17. VITAMIN A AND D [Concomitant]
  18. MUPIROCIN [Concomitant]
  19. TRIAMCINOLONE [Concomitant]
  20. ATIVAN [Concomitant]

REACTIONS (1)
  - Muscle twitching [Unknown]
